FAERS Safety Report 21626933 (Version 2)
Quarter: 2023Q1

REPORT INFORMATION
  Report Type: Report from Study
  Country: CA (occurrence: CA)
  Receive Date: 20221122
  Receipt Date: 20230109
  Transmission Date: 20230418
  Serious: Yes (Other)
  Sender: FDA-Public Use
  Company Number: CA-JNJFOC-20221123570

PATIENT
  Age: 35 Year
  Sex: Female
  Weight: 66 kg

DRUGS (2)
  1. REMICADE [Suspect]
     Active Substance: INFLIXIMAB
     Indication: Crohn^s disease
     Dosage: THERAPY START DATE ALSO REPORTED AS 09-DEC-2015
     Route: 042
     Dates: start: 20110113
  2. REMICADE [Suspect]
     Active Substance: INFLIXIMAB
     Dosage: ON 15-NOV-2022, PATIENT RECEIVED 95TH INFLIXIMAB, RECOMBINANT INFUSION OF 472.5 MG.
     Route: 041

REACTIONS (3)
  - Crohn^s disease [Recovered/Resolved]
  - Coxsackie viral infection [Recovered/Resolved]
  - COVID-19 [Recovered/Resolved]

NARRATIVE: CASE EVENT DATE: 20221109
